FAERS Safety Report 6288601-X (Version None)
Quarter: 2009Q3

REPORT INFORMATION
  Report Type: 
  Country: None (occurrence: None)
  Receive Date: 20090727
  Receipt Date: 20090715
  Transmission Date: 20100115
  Serious: Yes (Disabling)
  Sender: FDA-Public Use
  Company Number: 2009AP002893

PATIENT
  Age: 57 Year

DRUGS (5)
  1. RAMIPRIL [Suspect]
     Dosage: 2.5 MG; PO
     Route: 048
     Dates: start: 20090508
  2. ASPIRIN [Concomitant]
  3. INSULIN DETEMIR (INSULIN DETEMIR) [Concomitant]
  4. INSULIN ASPART (INSULIN ASPART) [Concomitant]
  5. SIMVASTATIN [Concomitant]

REACTIONS (2)
  - HYPOGLYCAEMIA [None]
  - LOSS OF CONSCIOUSNESS [None]
